FAERS Safety Report 16444796 (Version 1)
Quarter: 2019Q2

REPORT INFORMATION
  Report Type: Spontaneous
  Country: IT (occurrence: IT)
  Receive Date: 20190618
  Receipt Date: 20190618
  Transmission Date: 20190711
  Serious: Yes (Hospitalization)
  Sender: FDA-Public Use
  Company Number: IT-SA-2019SA157969

PATIENT
  Age: 78 Year
  Sex: Male

DRUGS (1)
  1. CLEXANE T [Suspect]
     Active Substance: ENOXAPARIN SODIUM
     Indication: ATRIAL FIBRILLATION
     Dosage: 1.2 ML, QD
     Route: 058
     Dates: start: 20190206, end: 20190210

REACTIONS (4)
  - Haematoma [Recovering/Resolving]
  - Anaemia [Recovering/Resolving]
  - Underweight [Recovering/Resolving]
  - Overdose [Recovering/Resolving]

NARRATIVE: CASE EVENT DATE: 20190210
